FAERS Safety Report 22876563 (Version 6)
Quarter: 2023Q4

REPORT INFORMATION
  Report Type: Spontaneous
  Country: US (occurrence: US)
  Receive Date: 20230829
  Receipt Date: 20231025
  Transmission Date: 20240109
  Serious: Yes (Other)
  Sender: FDA-Public Use
  Company Number: US-PFIZER INC-PV202300143310

PATIENT
  Age: 68 Year
  Sex: Female
  Weight: 96.16 kg

DRUGS (2)
  1. ESTRING [Suspect]
     Active Substance: ESTRADIOL
     Indication: Postmenopause
     Dosage: 2 MG, EVERY 3 MONTHS
     Route: 067
     Dates: start: 20230816
  2. ESTRING [Suspect]
     Active Substance: ESTRADIOL
     Indication: Hormone replacement therapy

REACTIONS (5)
  - Device difficult to use [Recovered/Resolved]
  - Device physical property issue [Recovered/Resolved]
  - Vulvovaginal pain [Recovered/Resolved]
  - Vulvovaginal discomfort [Recovered/Resolved]
  - Application site haemorrhage [Unknown]

NARRATIVE: CASE EVENT DATE: 20230816
